FAERS Safety Report 5525949-8 (Version None)
Quarter: 2007Q4

REPORT INFORMATION
  Report Type: 
  Country: None (occurrence: None)
  Receive Date: 20071126
  Receipt Date: 20071114
  Transmission Date: 20080405
  Serious: Yes (Other)
  Sender: FDA-Public Use
  Company Number: NL-PFIZER INC-2007096807

PATIENT
  Sex: Female

DRUGS (4)
  1. LYRICA [Suspect]
     Indication: NEUROPATHY PERIPHERAL
     Route: 048
  2. NEXIUM [Concomitant]
  3. DIOVAN HCT [Concomitant]
  4. SIMVASTATIN [Concomitant]

REACTIONS (2)
  - HYPERTENSION [None]
  - INSOMNIA [None]
